FAERS Safety Report 9868571 (Version 1)
Quarter: 2014Q1

REPORT INFORMATION
  Report Type: Spontaneous
  Country: CL (occurrence: CL)
  Receive Date: 20140204
  Receipt Date: 20140204
  Transmission Date: 20141002
  Serious: Yes (Other)
  Sender: FDA-Public Use
  Company Number: CL-PFIZER INC-2014030880

PATIENT
  Age: 81 Year
  Sex: Male

DRUGS (4)
  1. LIPITOR [Suspect]
     Dosage: 80 MG, 1X/DAY AS TWO TABLETS OF 40 MG
     Route: 048
     Dates: start: 2011
  2. LOSARTAN [Concomitant]
     Dosage: UNK
     Dates: start: 2009
  3. GLIBENCLAMIDA [Concomitant]
     Dosage: UNK
     Dates: start: 2009
  4. METFORMIN [Concomitant]
     Dosage: UNK
     Dates: start: 2011

REACTIONS (1)
  - Hearing aid user [Not Recovered/Not Resolved]
